FAERS Safety Report 5213625-0 (Version None)
Quarter: 2007Q1

REPORT INFORMATION
  Report Type: 
  Country: None (occurrence: None)
  Receive Date: 20070119
  Receipt Date: 20070108
  Transmission Date: 20070707
  Serious: Yes (Hospitalization, Other)
  Sender: FDA-Public Use
  Company Number: US-PFIZER INC-2006125446

PATIENT
  Sex: Female
  Weight: 60.8 kg

DRUGS (2)
  1. SUTENT [Suspect]
     Indication: RENAL CELL CARCINOMA STAGE UNSPECIFIED
     Route: 048
  2. COUMADIN [Suspect]
     Route: 065

REACTIONS (16)
  - ASTHENIA [None]
  - BALANCE DISORDER [None]
  - DEFORMITY THORAX [None]
  - FATIGUE [None]
  - FEMUR FRACTURE [None]
  - GAIT DISTURBANCE [None]
  - HAEMOGLOBIN [None]
  - HYPERTENSION [None]
  - LUMBAR VERTEBRAL FRACTURE [None]
  - METASTASES TO BONE [None]
  - PAIN [None]
  - PAIN IN EXTREMITY [None]
  - PANCYTOPENIA [None]
  - PULMONARY EMBOLISM [None]
  - RADICULAR PAIN [None]
  - THROMBOCYTOPENIA [None]
